FAERS Safety Report 17036815 (Version 2)
Quarter: 2019Q4

REPORT INFORMATION
  Report Type: Report from Study
  Country: BE (occurrence: BE)
  Receive Date: 20191115
  Receipt Date: 20191204
  Transmission Date: 20200122
  Serious: Yes (Other)
  Sender: FDA-Public Use
  Company Number: PHHY2017BE187914

PATIENT
  Age: 43 Year
  Sex: Female

DRUGS (8)
  1. GILENYA [Suspect]
     Active Substance: FINGOLIMOD HYDROCHLORIDE
     Indication: MULTIPLE SCLEROSIS
     Dosage: 0.5 MG, QD
     Route: 048
     Dates: start: 20130827, end: 20150601
  2. MELOXICAM. [Concomitant]
     Active Substance: MELOXICAM
     Indication: PAIN
     Dosage: UNK
     Route: 065
     Dates: start: 2014, end: 2014
  3. RIVOTRIL [Concomitant]
     Active Substance: CLONAZEPAM
     Indication: FEELING OF RELAXATION
     Dosage: 1 DF, QD
     Route: 065
     Dates: start: 20141104
  4. FURADANTINE [Concomitant]
     Active Substance: NITROFURANTOIN
     Indication: CYSTITIS
     Dosage: 2 DF, QD
     Route: 065
  5. DICLOFENAC [Concomitant]
     Active Substance: DICLOFENAC
     Indication: PAIN
     Dosage: UNK
     Route: 065
     Dates: start: 2014, end: 2014
  6. IBUPROFEN. [Concomitant]
     Active Substance: IBUPROFEN
     Indication: PRODUCT USED FOR UNKNOWN INDICATION
     Dosage: 2 DF, QD
     Route: 065
  7. ASPIRIN. [Concomitant]
     Active Substance: ASPIRIN
     Indication: PAIN
     Dosage: 1 TO 2 DF, QD
     Route: 048
     Dates: start: 20141201
  8. TRAMADOL. [Concomitant]
     Active Substance: TRAMADOL
     Indication: PAIN
     Dosage: 3 DF, UNK
     Route: 065
     Dates: start: 2014, end: 2014

REACTIONS (10)
  - Menorrhagia [Unknown]
  - Nausea [Unknown]
  - Sleep disorder [Unknown]
  - Musculoskeletal pain [Unknown]
  - Diarrhoea [Unknown]
  - White blood cell count decreased [Unknown]
  - Cystitis [Unknown]
  - Concomitant disease aggravated [Unknown]
  - Benign neoplasm of thyroid gland [Unknown]
  - Lymphocyte count decreased [Recovering/Resolving]

NARRATIVE: CASE EVENT DATE: 20131015
